FAERS Safety Report 10224809 (Version 1)
Quarter: 2014Q2

REPORT INFORMATION
  Report Type: Spontaneous
  Country: US (occurrence: US)
  Receive Date: 20140609
  Receipt Date: 20140609
  Transmission Date: 20141212
  Serious: No
  Sender: FDA-Public Use
  Company Number: US-GILEAD-2014-0104452

PATIENT
  Sex: Female

DRUGS (1)
  1. LETAIRIS [Suspect]
     Indication: PRODUCT USED FOR UNKNOWN INDICATION
     Dosage: 5 MG, QD
     Route: 065
     Dates: start: 20140411

REACTIONS (7)
  - Chest pain [Unknown]
  - Pain in extremity [Unknown]
  - Malaise [None]
  - Pain [Unknown]
  - Malaise [Unknown]
  - Dizziness [Unknown]
  - Muscle fatigue [Unknown]
